FAERS Safety Report 5174352-1 (Version None)
Quarter: 2006Q4

REPORT INFORMATION
  Report Type: 
  Country: None (occurrence: None)
  Receive Date: 20061214
  Receipt Date: 20061206
  Transmission Date: 20070319
  Serious: Yes (Hospitalization)
  Sender: FDA-Public Use
  Company Number: FR-BRISTOL-MYERS SQUIBB COMPANY-13606454

PATIENT
  Age: 76 Year
  Sex: Male
  Weight: 66 kg

DRUGS (6)
  1. AMIKLIN [Suspect]
     Indication: STAPHYLOCOCCAL SEPSIS
     Route: 042
     Dates: start: 20060625, end: 20060629
  2. OFLOXACIN [Suspect]
     Indication: STAPHYLOCOCCAL SEPSIS
     Route: 048
     Dates: start: 20060624, end: 20060702
  3. ORBENIN CAP [Suspect]
     Indication: STAPHYLOCOCCAL SEPSIS
     Route: 042
     Dates: start: 20060625, end: 20060702
  4. HALDOL [Suspect]
     Indication: SLEEP DISORDER
     Route: 048
     Dates: start: 20060612
  5. PREVISCAN [Concomitant]
     Indication: ANTICOAGULANT THERAPY
     Route: 048
  6. MONO-TILDIEM [Concomitant]
     Indication: ESSENTIAL HYPERTENSION
     Route: 048

REACTIONS (1)
  - THROMBOCYTOPENIA [None]
